FAERS Safety Report 5819973-5 (Version None)
Quarter: 2008Q3

REPORT INFORMATION
  Report Type: 
  Country: None (occurrence: None)
  Receive Date: 20080721
  Receipt Date: 20080713
  Transmission Date: 20090109
  Serious: Yes (Hospitalization, Other)
  Sender: FDA-Public Use
  Company Number: 2008SP014236

PATIENT
  Age: 48 Year
  Sex: Female

DRUGS (2)
  1. PEG-INTRON [Suspect]
     Indication: HEPATITIS C
     Dosage: SC
     Route: 058
     Dates: start: 20080527, end: 20080610
  2. RIBAVIRIN [Suspect]
     Indication: HEPATITIS C
     Dosage: PO
     Route: 048
     Dates: start: 20080527, end: 20080610

REACTIONS (10)
  - BACTERIAL INFECTION [None]
  - BLOOD DISORDER [None]
  - CHILLS [None]
  - DISTURBANCE IN ATTENTION [None]
  - FURUNCLE [None]
  - IMMUNE SYSTEM DISORDER [None]
  - PAIN [None]
  - PYREXIA [None]
  - VISUAL IMPAIRMENT [None]
  - VOMITING [None]
